FAERS Safety Report 19934747 (Version 1)
Quarter: 2021Q4

REPORT INFORMATION
  Report Type: Spontaneous
  Country: US (occurrence: US)
  Receive Date: 20211008
  Receipt Date: 20211008
  Transmission Date: 20220303
  Serious: Yes (Life-Threatening, Other)
  Sender: FDA-Public Use
  Company Number: US-MYLANLABS-2021M1063291

PATIENT
  Sex: Female
  Weight: 84 kg

DRUGS (1)
  1. DICYCLOMINE [Suspect]
     Active Substance: DICYCLOMINE HYDROCHLORIDE
     Indication: Autoimmune pancreatitis
     Dosage: UNK
     Route: 048

REACTIONS (1)
  - Anaphylactic reaction [Not Recovered/Not Resolved]
